FAERS Safety Report 4889560-4 (Version None)
Quarter: 2006Q1

REPORT INFORMATION
  Report Type: 
  Country: None (occurrence: None)
  Receive Date: 20060120
  Receipt Date: 20060120
  Transmission Date: 20060701
  Serious: Yes (Other)
  Sender: FDA-Public Use
  Company Number: None

PATIENT
  Age: 59 Year
  Sex: Male
  Weight: 92.9874 kg

DRUGS (1)
  1. TERAZOSIN CAPS 5 MG APOTEX [Suspect]
     Indication: BLADDER DISORDER
     Dosage: 1 CAPSULE DAILY PO
     Route: 048
     Dates: start: 20060105, end: 20060118

REACTIONS (2)
  - DRUG INEFFECTIVE [None]
  - THERAPEUTIC RESPONSE UNEXPECTED WITH DRUG SUBSTITUTION [None]
